FAERS Safety Report 15973943 (Version 3)
Quarter: 2019Q1

REPORT INFORMATION
  Report Type: Report from Study
  Country: DE (occurrence: DE)
  Receive Date: 20190217
  Receipt Date: 20190226
  Transmission Date: 20190418
  Serious: Yes (Death, Hospitalization, Other)
  Sender: FDA-Public Use
  Company Number: DE-BRISTOL-MYERS SQUIBB COMPANY-BMS-2018-086356

PATIENT
  Age: 60 Year
  Sex: Male

DRUGS (6)
  1. NIVOLUMAB [Suspect]
     Active Substance: NIVOLUMAB
     Indication: SQUAMOUS CELL CARCINOMA OF HEAD AND NECK
     Dosage: 3 MG/KG, Q2WK
     Route: 042
     Dates: start: 20180712, end: 20180906
  2. MORPHINE [Concomitant]
     Active Substance: MORPHINE
     Indication: MALIGNANT NEOPLASM PROGRESSION
     Dosage: 4 GTT, PRN
     Route: 065
     Dates: start: 20180809, end: 20181013
  3. ASPIRIN. [Concomitant]
     Active Substance: ASPIRIN
     Indication: PRODUCT USED FOR UNKNOWN INDICATION
     Dosage: 100 MG, UNK
     Route: 065
     Dates: end: 20181013
  4. BISOPROLOL [Concomitant]
     Active Substance: BISOPROLOL
     Indication: PRODUCT USED FOR UNKNOWN INDICATION
     Dosage: 1.25 MG, UNK
     Route: 065
     Dates: end: 20181013
  5. DUROGESIC [Concomitant]
     Active Substance: FENTANYL
     Indication: MALIGNANT NEOPLASM PROGRESSION
     Dosage: 25 ?G, UNK
     Route: 065
     Dates: start: 20180809, end: 20181013
  6. METRONIDAZOL                       /00012501/ [Concomitant]
     Active Substance: METRONIDAZOLE
     Indication: PRODUCT USED FOR UNKNOWN INDICATION
     Dosage: UNK, PRN
     Route: 065
     Dates: start: 20180906, end: 20181013

REACTIONS (4)
  - Malignant neoplasm progression [Fatal]
  - Mucosal inflammation [Not Recovered/Not Resolved]
  - Breath odour [Not Recovered/Not Resolved]
  - Nausea [Recovered/Resolved]

NARRATIVE: CASE EVENT DATE: 20180716
